FAERS Safety Report 8365654-6 (Version None)
Quarter: 2012Q2

REPORT INFORMATION
  Report Type: 
  Country: None (occurrence: None)
  Receive Date: 20120516
  Receipt Date: 20120507
  Transmission Date: 20120825
  Serious: Yes (Other)
  Sender: FDA-Public Use
  Company Number: US-BIOGENIDEC-2012BI016407

PATIENT
  Age: 33 Year
  Sex: Female

DRUGS (2)
  1. TYSABRI [Suspect]
     Indication: CROHN'S DISEASE
     Route: 042
     Dates: start: 20120202
  2. BENADRYL [Concomitant]
     Indication: PREMEDICATION

REACTIONS (5)
  - NAUSEA [None]
  - BODY TEMPERATURE INCREASED [None]
  - ARTHRALGIA [None]
  - PYREXIA [None]
  - VOMITING [None]
